FAERS Safety Report 4425099-8 (Version None)
Quarter: 2004Q3

REPORT INFORMATION
  Report Type: 
  Country: None (occurrence: None)
  Receive Date: 20040813
  Receipt Date: 20040804
  Transmission Date: 20050211
  Serious: Yes (Death, Hospitalization)
  Sender: FDA-Public Use
  Company Number: JP-JNJFOC-20040801088

PATIENT
  Age: 60 Year
  Sex: Female

DRUGS (8)
  1. OFLOXACIN [Suspect]
     Indication: DRUG USE FOR UNKNOWN INDICATION
     Route: 049
     Dates: end: 20040630
  2. RIFADIN [Suspect]
     Indication: DRUG USE FOR UNKNOWN INDICATION
     Route: 049
  3. GLUCOPHAGE [Suspect]
     Indication: DRUG USE FOR UNKNOWN INDICATION
     Route: 049
  4. HYPERIUM [Suspect]
     Indication: DRUG USE FOR UNKNOWN INDICATION
     Route: 049
  5. NEURONTIN [Suspect]
     Indication: DRUG USE FOR UNKNOWN INDICATION
     Route: 049
  6. FURADANTIN [Suspect]
     Indication: DRUG USE FOR UNKNOWN INDICATION
     Route: 049
  7. APROVEL [Concomitant]
     Route: 049
  8. FERRITIN [Concomitant]

REACTIONS (8)
  - CARDIAC ARREST [None]
  - EPILEPSY [None]
  - HEPATIC FAILURE [None]
  - HEPATOCELLULAR DAMAGE [None]
  - KETOACIDOSIS [None]
  - LACTIC ACIDOSIS [None]
  - RESPIRATORY DISTRESS [None]
  - SEPTIC SHOCK [None]
